FAERS Safety Report 16407766 (Version 2)
Quarter: 2019Q3

REPORT INFORMATION
  Report Type: Spontaneous
  Country: US (occurrence: US)
  Receive Date: 20190609
  Receipt Date: 20190716
  Transmission Date: 20191004
  Serious: Yes (Other)
  Sender: FDA-Public Use
  Company Number: US-LUNDBECK-DKLU2079814

PATIENT
  Age: 3 Year
  Sex: Female

DRUGS (1)
  1. SABRIL [Suspect]
     Active Substance: VIGABATRIN
     Indication: STATUS EPILEPTICUS
     Route: 048
     Dates: start: 20170426

REACTIONS (2)
  - Head injury [Unknown]
  - Seizure [Unknown]

NARRATIVE: CASE EVENT DATE: 20190522
